FAERS Safety Report 6566751-8 (Version None)
Quarter: 2010Q1

REPORT INFORMATION
  Report Type: 
  Country: None (occurrence: None)
  Receive Date: 20100202
  Receipt Date: 20100120
  Transmission Date: 20100710
  Serious: Yes (Death, Other)
  Sender: FDA-Public Use
  Company Number: JP-PFIZER INC-2010011773

PATIENT
  Age: 65 Year
  Sex: Female

DRUGS (1)
  1. SERTRALINE HCL [Suspect]
     Indication: DEPRESSION
     Route: 048

REACTIONS (7)
  - ASTHENIA [None]
  - BEDRIDDEN [None]
  - DISEASE PROGRESSION [None]
  - FALL [None]
  - FRACTURE [None]
  - NAUSEA [None]
  - VOMITING [None]
